FAERS Safety Report 10073472 (Version 1)
Quarter: 2014Q2

REPORT INFORMATION
  Report Type: Spontaneous
  Country: US (occurrence: US)
  Receive Date: 20140411
  Receipt Date: 20140411
  Transmission Date: 20141212
  Serious: Yes (Life-Threatening, Hospitalization, Other)
  Sender: FDA-Public Use
  Company Number: US-ACTAVIS-2014-06868

PATIENT
  Age: 27 Year
  Sex: Male

DRUGS (5)
  1. NAPROXEN (WATSON LABORATORIES) [Suspect]
     Indication: HEADACHE
     Dosage: 440 MG, SINGLE
     Route: 065
  2. KETOROLAC (WATSON LABORATORIES) [Suspect]
     Indication: IMMUNE TOLERANCE INDUCTION
     Dosage: 7.58 MG, UNKNOWN
     Route: 045
  3. ACETYLSALICYLIC ACID (UNKNOWN) [Suspect]
     Indication: IMMUNE TOLERANCE INDUCTION
     Dosage: UNK
     Route: 048
  4. PREDNISONE [Concomitant]
     Indication: ASTHMA
     Dosage: 10 MG, DAILY
     Route: 065
  5. FLUTICASONE W/SALMETEROL [Concomitant]
     Indication: ASTHMA
     Dosage: 250/50
     Route: 055

REACTIONS (2)
  - Status asthmaticus [Recovered/Resolved]
  - Aspirin-exacerbated respiratory disease [Unknown]
